FAERS Safety Report 25675247 (Version 1)
Quarter: 2025Q3

REPORT INFORMATION
  Report Type: Spontaneous
  Country: EU (occurrence: EU)
  Receive Date: 20250813
  Receipt Date: 20250813
  Transmission Date: 20251020
  Serious: Yes (Other)
  Sender: MANKIND PHARMA
  Company Number: EU-MankindUS-000454

PATIENT
  Age: 58 Year
  Sex: Male

DRUGS (2)
  1. LIDOCAINE HYDROCHLORIDE [Suspect]
     Active Substance: LIDOCAINE HYDROCHLORIDE
     Indication: Anaesthesia
  2. BUPIVACAINE [Suspect]
     Active Substance: BUPIVACAINE
     Indication: Anaesthesia

REACTIONS (4)
  - Macular ischaemia [Recovering/Resolving]
  - Accidental exposure to product [Unknown]
  - Open globe injury [Recovering/Resolving]
  - Vitreous haemorrhage [Recovering/Resolving]
